FAERS Safety Report 13965907 (Version 1)
Quarter: 2017Q3

REPORT INFORMATION
  Report Type: Spontaneous
  Country: DE (occurrence: DE)
  Receive Date: 20170913
  Receipt Date: 20170913
  Transmission Date: 20171128
  Serious: Yes (Other)
  Sender: FDA-Public Use
  Company Number: DE-TEVA-803813GER

PATIENT
  Age: 81 Year
  Sex: Male

DRUGS (1)
  1. SIMVASTATIN-RATIOPHARM 40 MG FILMTABLETTEN [Suspect]
     Active Substance: SIMVASTATIN
     Route: 048
     Dates: start: 201612

REACTIONS (1)
  - Post procedural haemorrhage [Unknown]

NARRATIVE: CASE EVENT DATE: 2017
